FAERS Safety Report 5515899-5 (Version None)
Quarter: 2007Q4

REPORT INFORMATION
  Report Type: 
  Country: None (occurrence: None)
  Receive Date: 20071109
  Receipt Date: 20071031
  Transmission Date: 20080405
  Serious: Yes (Life-Threatening, Hospitalization)
  Sender: FDA-Public Use
  Company Number: 2007AL004678

PATIENT
  Age: 69 Year
  Sex: Female

DRUGS (1)
  1. CITALOPRAM HYDROBROMIDE [Suspect]
     Indication: DEPRESSION
     Dosage: 10 MG;QD; PO
     Route: 048
     Dates: start: 20070628, end: 20070727

REACTIONS (1)
  - SUBDURAL HAEMORRHAGE [None]
